FAERS Safety Report 4653057-7 (Version None)
Quarter: 2005Q2

REPORT INFORMATION
  Report Type: 
  Country: None (occurrence: None)
  Receive Date: 20050505
  Receipt Date: 20050501
  Transmission Date: 20051028
  Serious: Yes (Hospitalization)
  Sender: FDA-Public Use
  Company Number: IL-MERCK-0505ISR00001

PATIENT
  Age: 57 Year
  Sex: Male

DRUGS (2)
  1. INVANZ [Suspect]
     Indication: ABSCESS
     Route: 042
     Dates: start: 20050413, end: 20050426
  2. VANCOMYCIN [Concomitant]
     Route: 065

REACTIONS (2)
  - ENCEPHALOPATHY [None]
  - MYOCLONUS [None]
